FAERS Safety Report 15803056 (Version 1)
Quarter: 2019Q1

REPORT INFORMATION
  Report Type: Spontaneous
  Country: US (occurrence: US)
  Receive Date: 20190108
  Receipt Date: 20190108
  Transmission Date: 20190417
  Serious: No
  Sender: FDA-Public Use
  Company Number: None

PATIENT

DRUGS (4)
  1. ETOPOSIDE. [Suspect]
     Active Substance: ETOPOSIDE
     Dates: end: 20181116
  2. PEG-L-ASPARAGINASE [Suspect]
     Active Substance: PEGASPARGASE
     Dates: end: 20181116
  3. CYTARABINE. [Suspect]
     Active Substance: CYTARABINE
     Dates: end: 20181116
  4. METHOTREXATE. [Suspect]
     Active Substance: METHOTREXATE
     Dates: end: 20181112

REACTIONS (7)
  - Vomiting [None]
  - Productive cough [None]
  - Sputum discoloured [None]
  - Syncope [None]
  - Fatigue [None]
  - Oropharyngeal pain [None]
  - Rhinovirus infection [None]
